FAERS Safety Report 16487750 (Version 1)
Quarter: 2019Q3

REPORT INFORMATION
  Report Type: Spontaneous
  Country: US (occurrence: US)
  Receive Date: 20190626
  Receipt Date: 20190626
  Transmission Date: 20191004
  Serious: Yes (Other)
  Sender: FDA-Public Use
  Company Number: None

PATIENT
  Age: 64 Year
  Sex: Female
  Weight: 89.1 kg

DRUGS (1)
  1. DEFINITY [Suspect]
     Active Substance: PERFLUTREN
     Indication: ECHOCARDIOGRAM
     Dosage: ?          OTHER FREQUENCY:DIVIDED DOSES-2;?
     Route: 042

REACTIONS (5)
  - Sinus operation [None]
  - Cough [None]
  - Ocular hyperaemia [None]
  - Eye pruritus [None]
  - Nasal congestion [None]

NARRATIVE: CASE EVENT DATE: 20190626
